FAERS Safety Report 16151085 (Version 2)
Quarter: 2019Q3

REPORT INFORMATION
  Report Type: Spontaneous
  Country: JP (occurrence: JP)
  Receive Date: 20190402
  Receipt Date: 20190710
  Transmission Date: 20191004
  Serious: Yes (Other)
  Sender: FDA-Public Use
  Company Number: JP-TAKEDA-2019TJP006773

PATIENT
  Age: 7 Decade
  Sex: Male

DRUGS (2)
  1. AZANIN [Suspect]
     Active Substance: AZATHIOPRINE
     Indication: PRODUCT USED FOR UNKNOWN INDICATION
     Dosage: UNK
     Route: 065
  2. ENTYVIO [Suspect]
     Active Substance: VEDOLIZUMAB
     Indication: COLITIS ULCERATIVE
     Dosage: UNK
     Route: 041
     Dates: start: 20190107

REACTIONS (1)
  - Myelodysplastic syndrome [Unknown]

NARRATIVE: CASE EVENT DATE: 20190318
